FAERS Safety Report 9998482 (Version 5)
Quarter: 2014Q2

REPORT INFORMATION
  Report Type: Spontaneous
  Country: CA (occurrence: CA)
  Receive Date: 20140312
  Receipt Date: 20140502
  Transmission Date: 20141212
  Serious: Yes (Other)
  Sender: FDA-Public Use
  Company Number: CA-ROCHE-1361602

PATIENT
  Age: 56 Year
  Sex: Female

DRUGS (25)
  1. XOLAIR [Suspect]
     Indication: ASTHMA
     Route: 058
     Dates: start: 20130205
  2. XOLAIR [Suspect]
     Route: 058
     Dates: start: 20130320
  3. XOLAIR [Suspect]
     Route: 058
     Dates: start: 20130402
  4. XOLAIR [Suspect]
     Route: 058
     Dates: start: 20130513
  5. XOLAIR [Suspect]
     Route: 058
     Dates: start: 20130527
  6. XOLAIR [Suspect]
     Route: 058
     Dates: start: 20130610
  7. XOLAIR [Suspect]
     Route: 058
     Dates: start: 20130624
  8. XOLAIR [Suspect]
     Route: 058
     Dates: start: 20130904
  9. XOLAIR [Suspect]
     Route: 058
     Dates: start: 20130930
  10. XOLAIR [Suspect]
     Route: 058
     Dates: start: 20131016
  11. XOLAIR [Suspect]
     Route: 058
     Dates: start: 20131028
  12. XOLAIR [Suspect]
     Route: 058
     Dates: start: 20131122
  13. XOLAIR [Suspect]
     Route: 058
     Dates: start: 20131202
  14. XOLAIR [Suspect]
     Route: 058
     Dates: start: 20131216
  15. XOLAIR [Suspect]
     Route: 058
     Dates: start: 20140224
  16. XOLAIR [Suspect]
     Route: 058
     Dates: start: 20140310
  17. XOLAIR [Suspect]
     Route: 058
     Dates: start: 20140407
  18. XOLAIR [Suspect]
     Route: 058
     Dates: start: 20140421
  19. SYMBICORT [Concomitant]
  20. SPIRIVA [Concomitant]
  21. NASONEX [Concomitant]
  22. OMNARIS [Concomitant]
  23. ALVESCO [Concomitant]
  24. VENTOLIN [Concomitant]
  25. DRIXORAL CAPSULES (UNK INGREDIENTS) [Concomitant]

REACTIONS (11)
  - Pneumonia [Recovered/Resolved]
  - Wheezing [Unknown]
  - Dyspnoea [Not Recovered/Not Resolved]
  - Vomiting [Unknown]
  - Nausea [Unknown]
  - Dehydration [Unknown]
  - Hypotension [Unknown]
  - Heart rate increased [Unknown]
  - Pulmonary congestion [Unknown]
  - Body temperature decreased [Unknown]
  - Malaise [Unknown]
